FAERS Safety Report 23439518 (Version 3)
Quarter: 2024Q2

REPORT INFORMATION
  Report Type: Spontaneous
  Country: JP (occurrence: None)
  Receive Date: 20240124
  Receipt Date: 20240411
  Transmission Date: 20240716
  Serious: Yes (Other)
  Sender: FDA-Public Use
  Company Number: 2023A248903

PATIENT
  Age: 75 Year
  Sex: Male
  Weight: 51 kg

DRUGS (13)
  1. IMFINZI [Suspect]
     Active Substance: DURVALUMAB
     Indication: Non-small cell lung cancer
     Dosage: 530 MG/ML
     Route: 042
     Dates: start: 20230704, end: 20230816
  2. RIFAMPIN [Suspect]
     Active Substance: RIFAMPIN
     Dates: start: 20230920, end: 20231120
  3. ISCOTIN [Suspect]
     Active Substance: ISONIAZID
     Dates: start: 20230920, end: 20231120
  4. ETHAMBUTOL HYDROCHLORIDE [Suspect]
     Active Substance: ETHAMBUTOL HYDROCHLORIDE
     Dates: start: 20230920, end: 20231120
  5. PYRAZINAMIDE [Suspect]
     Active Substance: PYRAZINAMIDE
     Dates: start: 20230920, end: 20231120
  6. ZOLPIDEM TARTRATE [Concomitant]
     Active Substance: ZOLPIDEM TARTRATE
     Route: 048
  7. AMBROXOL HYDROCHLORIDE [Concomitant]
     Active Substance: AMBROXOL HYDROCHLORIDE
     Route: 048
  8. URSODIOL [Concomitant]
     Active Substance: URSODIOL
     Route: 048
  9. CELECOXIB [Concomitant]
     Active Substance: CELECOXIB
     Route: 048
  10. PASOTOMIN [Concomitant]
     Route: 048
  11. MAGNESIUM OXIDE [Concomitant]
     Active Substance: MAGNESIUM OXIDE
     Route: 048
  12. DEXTROMETHORPHAN HYDROBROMIDE [Concomitant]
     Active Substance: DEXTROMETHORPHAN HYDROBROMIDE
     Route: 048
  13. BEPOTASTINE BESYLATE [Concomitant]
     Active Substance: BEPOTASTINE BESYLATE
     Route: 048

REACTIONS (5)
  - Tuberculous pleurisy [Recovered/Resolved]
  - Tuberculosis [Unknown]
  - Pneumonia [Recovering/Resolving]
  - Pneumonia bacterial [Recovering/Resolving]
  - Liver disorder [Unknown]

NARRATIVE: CASE EVENT DATE: 20230101
